FAERS Safety Report 9789980 (Version 2)
Quarter: 2013Q4

REPORT INFORMATION
  Report Type: Report from Study
  Country: CA (occurrence: CA)
  Receive Date: 20131231
  Receipt Date: 20131231
  Transmission Date: 20140711
  Serious: Yes (Hospitalization)
  Sender: FDA-Public Use
  Company Number: CA-ROCHE-1319912

PATIENT
  Age: 37 Year
  Sex: Female
  Weight: 63.5 kg

DRUGS (7)
  1. RITUXAN [Suspect]
     Indication: RHEUMATOID ARTHRITIS
     Dosage: DAY 1 AND DAY 15
     Route: 042
     Dates: start: 20130530
  2. DIPHENHYDRAMINE HCL [Concomitant]
     Route: 048
     Dates: start: 20130530
  3. ACETAMINOPHEN [Concomitant]
     Route: 048
     Dates: start: 20130530
  4. METHYLPREDNISOLONE [Concomitant]
     Route: 042
     Dates: start: 20130530
  5. METHOTREXATE [Concomitant]
     Route: 065
     Dates: end: 20131218
  6. PREDNISONE [Concomitant]
  7. FOLIC ACID [Concomitant]

REACTIONS (6)
  - Neutropenia [Unknown]
  - Viral myocarditis [Unknown]
  - Adrenal insufficiency [Unknown]
  - Hepatic enzyme increased [Unknown]
  - Headache [Recovered/Resolved]
  - Body temperature increased [Recovered/Resolved]
